FAERS Safety Report 4331544-9 (Version None)
Quarter: 2004Q2

REPORT INFORMATION
  Report Type: 
  Country: None (occurrence: None)
  Receive Date: 20040402
  Receipt Date: 20040319
  Transmission Date: 20050107
  Serious: Yes (Life-Threatening, Disabling)
  Sender: FDA-Public Use
  Company Number: US-MERCK-0403USA02527

PATIENT
  Sex: Female
  Weight: 45 kg

DRUGS (1)
  1. MINTEZOL [Suspect]
     Indication: HELMINTHIC INFECTION
     Route: 048
     Dates: start: 20040316, end: 20040324

REACTIONS (2)
  - BEDRIDDEN [None]
  - EATING DISORDER [None]
